FAERS Safety Report 13273088 (Version 4)
Quarter: 2019Q2

REPORT INFORMATION
  Report Type: Spontaneous
  Country: US (occurrence: US)
  Receive Date: 20170227
  Receipt Date: 20190617
  Transmission Date: 20190711
  Serious: Yes (Hospitalization, Other)
  Sender: FDA-Public Use
  Company Number: US-EMD SERONO-7059109

PATIENT
  Sex: Female
  Weight: 65 kg

DRUGS (9)
  1. REBIF [Suspect]
     Active Substance: INTERFERON BETA-1A
     Route: 058
     Dates: start: 20110620, end: 201109
  2. GLIPIZIDE. [Concomitant]
     Active Substance: GLIPIZIDE
     Indication: PRODUCT USED FOR UNKNOWN INDICATION
  3. CONCERTA [Concomitant]
     Active Substance: METHYLPHENIDATE HYDROCHLORIDE
     Indication: PRODUCT USED FOR UNKNOWN INDICATION
  4. REBIF [Suspect]
     Active Substance: INTERFERON BETA-1A
     Route: 058
  5. LISINOPRIL. [Concomitant]
     Active Substance: LISINOPRIL
     Indication: PRODUCT USED FOR UNKNOWN INDICATION
  6. REBIF [Suspect]
     Active Substance: INTERFERON BETA-1A
     Route: 058
  7. REBIF [Suspect]
     Active Substance: INTERFERON BETA-1A
     Indication: MULTIPLE SCLEROSIS
     Route: 058
     Dates: start: 20071126, end: 201105
  8. REBIF [Suspect]
     Active Substance: INTERFERON BETA-1A
     Route: 058
     Dates: start: 201110, end: 20111107
  9. METFORMIN [Concomitant]
     Active Substance: METFORMIN HYDROCHLORIDE
     Indication: PRODUCT USED FOR UNKNOWN INDICATION

REACTIONS (12)
  - Arthropathy [Recovering/Resolving]
  - Memory impairment [Unknown]
  - Procedural pain [Not Recovered/Not Resolved]
  - Pain [Unknown]
  - Inappropriate schedule of product administration [Unknown]
  - Musculoskeletal discomfort [Unknown]
  - Cartilage injury [Recovered/Resolved]
  - Device dislocation [Recovered/Resolved]
  - Limb asymmetry [Not Recovered/Not Resolved]
  - Osteoarthritis [Recovered/Resolved]
  - Chest discomfort [Recovered/Resolved]
  - Spinal stenosis [Not Recovered/Not Resolved]
